FAERS Safety Report 14524360 (Version 3)
Quarter: 2019Q2

REPORT INFORMATION
  Report Type: Spontaneous
  Country: US (occurrence: US)
  Receive Date: 20180213
  Receipt Date: 20190411
  Transmission Date: 20190711
  Serious: No
  Sender: FDA-Public Use
  Company Number: US-PFIZER INC-2018063040

PATIENT
  Age: 64 Year
  Sex: Female
  Weight: 117 kg

DRUGS (1)
  1. LEVOTHYROXINE SODIUM. [Suspect]
     Active Substance: LEVOTHYROXINE SODIUM
     Dosage: 0.6 MG, UNK
     Dates: start: 1996

REACTIONS (1)
  - Drug ineffective [Recovered/Resolved]
